FAERS Safety Report 5356672-0 (Version None)
Quarter: 2007Q2

REPORT INFORMATION
  Report Type: 
  Country: None (occurrence: None)
  Receive Date: 20070614
  Receipt Date: 20070612
  Transmission Date: 20071010
  Serious: Yes (Life-Threatening)
  Sender: FDA-Public Use
  Company Number: PHNR2007AU01222

PATIENT
  Age: 26 Year
  Sex: Female

DRUGS (1)
  1. VOLTAREN [Suspect]
     Dosage: UNK, ONCE/SINGLE
     Route: 048
     Dates: start: 20070212, end: 20070212

REACTIONS (5)
  - CIRCULATORY COLLAPSE [None]
  - GENERALISED OEDEMA [None]
  - HYPOTENSION [None]
  - LIP SWELLING [None]
  - PARAESTHESIA [None]
